FAERS Safety Report 18107880 (Version 3)
Quarter: 2020Q3

REPORT INFORMATION
  Report Type: Other
  Country: IT (occurrence: IT)
  Receive Date: 20200804
  Receipt Date: 20200910
  Transmission Date: 20201103
  Serious: Yes (Death, Other)
  Sender: FDA-Public Use
  Company Number: IT-ROCHE-2650187

PATIENT
  Age: 7 Decade
  Sex: Female

DRUGS (14)
  1. ETOPOSIDE. [Suspect]
     Active Substance: ETOPOSIDE
     Indication: IMMUNOSUPPRESSANT DRUG THERAPY
     Route: 065
  2. CYTARABINE. [Suspect]
     Active Substance: CYTARABINE
     Indication: IMMUNOSUPPRESSANT DRUG THERAPY
     Route: 065
  3. CYCLOPHOSPHAMIDE. [Suspect]
     Active Substance: CYCLOPHOSPHAMIDE
     Indication: CHRONIC LYMPHOCYTIC LEUKAEMIA
     Route: 065
  4. FLUDARABINE [Suspect]
     Active Substance: FLUDARABINE PHOSPHATE
     Indication: CHRONIC LYMPHOCYTIC LEUKAEMIA
     Route: 065
  5. OFATUMUMAB [Suspect]
     Active Substance: OFATUMUMAB
     Indication: CHRONIC LYMPHOCYTIC LEUKAEMIA
     Route: 065
  6. MELPHALAN. [Suspect]
     Active Substance: MELPHALAN
     Indication: IMMUNOSUPPRESSANT DRUG THERAPY
     Route: 065
  7. IDELALISIB [Suspect]
     Active Substance: IDELALISIB
     Indication: CHRONIC LYMPHOCYTIC LEUKAEMIA
     Route: 048
     Dates: start: 201512
  8. IDELALISIB [Suspect]
     Active Substance: IDELALISIB
     Route: 048
     Dates: start: 201510
  9. CARMUSTINE. [Suspect]
     Active Substance: CARMUSTINE
     Indication: IMMUNOSUPPRESSANT DRUG THERAPY
     Route: 065
  10. OFATUMUMAB [Suspect]
     Active Substance: OFATUMUMAB
     Route: 065
  11. RITUXIMAB. [Suspect]
     Active Substance: RITUXIMAB
     Indication: CHRONIC LYMPHOCYTIC LEUKAEMIA
     Dosage: RECEIVED 5 COURSES OUT OF 8
     Route: 065
     Dates: start: 201510, end: 201512
  12. IDELALISIB [Suspect]
     Active Substance: IDELALISIB
     Route: 048
  13. IDELALISIB [Suspect]
     Active Substance: IDELALISIB
     Route: 048
     Dates: end: 201609
  14. BENDAMUSTINE [Suspect]
     Active Substance: BENDAMUSTINE
     Indication: CHRONIC LYMPHOCYTIC LEUKAEMIA
     Route: 065

REACTIONS (10)
  - Anosognosia [Unknown]
  - Muscular weakness [Unknown]
  - Status epilepticus [Unknown]
  - Ataxia [Unknown]
  - Colitis [Recovered/Resolved]
  - Rash [Unknown]
  - Status epilepticus [Fatal]
  - Immune reconstitution inflammatory syndrome [Unknown]
  - Progressive multifocal leukoencephalopathy [Fatal]
  - Hemianopia [Unknown]

NARRATIVE: CASE EVENT DATE: 201609
